FAERS Safety Report 7125132-9 (Version None)
Quarter: 2010Q4

REPORT INFORMATION
  Report Type: 
  Country: None (occurrence: None)
  Receive Date: 20101129
  Receipt Date: 20101021
  Transmission Date: 20110411
  Serious: Yes (Hospitalization)
  Sender: FDA-Public Use
  Company Number: DE-AMGEN-QUU434889

PATIENT

DRUGS (5)
  1. NEULASTA [Suspect]
     Indication: CHEMOTHERAPY
     Dosage: 6 MG, ONE TIME DOSE
     Route: 058
     Dates: start: 20100814, end: 20100814
  2. VINBLASTINE [Concomitant]
     Dosage: 11.5 MG, UNK
     Route: 042
     Dates: start: 20100813, end: 20100813
  3. DOXORUBICIN HCL [Concomitant]
     Dosage: 48 MG, UNK
     Route: 042
     Dates: start: 20100813, end: 20100813
  4. GEMCITABINE [Concomitant]
     Dosage: 1930 MG, UNK
     Route: 042
     Dates: start: 20100813, end: 20100813
  5. PREDNISOLON                        /00016201/ [Concomitant]
     Dosage: 50 MG, UNK
     Route: 048
     Dates: start: 20100813, end: 20100813

REACTIONS (3)
  - PAIN [None]
  - QUADRIPARESIS [None]
  - SOMATOFORM DISORDER [None]
